FAERS Safety Report 8279263-0 (Version None)
Quarter: 2012Q2

REPORT INFORMATION
  Report Type: 
  Country: None (occurrence: None)
  Receive Date: 20120412
  Receipt Date: 20120214
  Transmission Date: 20120825
  Serious: No
  Sender: FDA-Public Use
  Company Number: US-ASTRAZENECA-2010SE38920

PATIENT
  Sex: Female

DRUGS (1)
  1. NEXIUM [Suspect]
     Route: 048

REACTIONS (10)
  - DRUG DOSE OMISSION [None]
  - OROPHARYNGEAL PAIN [None]
  - DYSPEPSIA [None]
  - GASTROOESOPHAGEAL REFLUX DISEASE [None]
  - SLEEP DISORDER DUE TO A GENERAL MEDICAL CONDITION [None]
  - ABDOMINAL DISCOMFORT [None]
  - OESOPHAGEAL PAIN [None]
  - THROAT IRRITATION [None]
  - FEELING ABNORMAL [None]
  - APHAGIA [None]
